FAERS Safety Report 7224364-9 (Version None)
Quarter: 2011Q1

REPORT INFORMATION
  Report Type: 
  Country: None (occurrence: None)
  Receive Date: 20110104
  Receipt Date: 20101220
  Transmission Date: 20110831
  Serious: Yes (Hospitalization)
  Sender: FDA-Public Use
  Company Number: 2010SP1002716

PATIENT
  Age: 87 Year

DRUGS (15)
  1. MULTI-VITAMIN [Concomitant]
  2. FOSAMAX [Concomitant]
  3. DIOVAN [Concomitant]
  4. ^WATER PILL^ [Concomitant]
  5. LEVAQUIN [Concomitant]
  6. FOLTX [Concomitant]
  7. ZANTAC [Concomitant]
  8. ATIVAN [Concomitant]
  9. CALTRATE [Concomitant]
  10. NEOSPORIN [Concomitant]
  11. OXYCODONE [Concomitant]
  12. TYLENOL-500 [Concomitant]
  13. FENTANYL-25 [Suspect]
     Indication: BACK PAIN
     Dosage: 25 MCG/HR;Q72H; TDER
     Route: 062
     Dates: start: 20100929
  14. FENTANYL-25 [Suspect]
     Indication: BACK PAIN
     Dosage: 25 MCG/HR;Q72H; TDER
     Route: 062
     Dates: start: 20080101, end: 20100928
  15. COLACE [Concomitant]

REACTIONS (9)
  - FALL [None]
  - DIZZINESS [None]
  - SYNCOPE [None]
  - HYPERTENSION [None]
  - OSTEOARTHRITIS [None]
  - FOOT FRACTURE [None]
  - LACERATION [None]
  - NAUSEA [None]
  - URINARY TRACT INFECTION [None]
